FAERS Safety Report 10239200 (Version 1)
Quarter: 2014Q2

REPORT INFORMATION
  Report Type: Spontaneous
  Country: US (occurrence: US)
  Receive Date: 20140616
  Receipt Date: 20140616
  Transmission Date: 20141212
  Serious: Yes (Other)
  Sender: FDA-Public Use
  Company Number: US-009507513-1406USA006619

PATIENT
  Sex: Male

DRUGS (1)
  1. AFRIN SEVERE CONGESTION SPRAY WITH MENTHOL [Suspect]
     Indication: PRODUCT USED FOR UNKNOWN INDICATION
     Dosage: UNK, PRN
     Route: 045

REACTIONS (1)
  - Pancreatitis [Unknown]
